FAERS Safety Report 8818950 (Version 2)
Quarter: 2013Q2

REPORT INFORMATION
  Report Type: Report from Study
  Country: MX (occurrence: MX)
  Receive Date: 20121001
  Receipt Date: 20130422
  Transmission Date: 20140414
  Serious: Yes (Hospitalization)
  Sender: FDA-Public Use
  Company Number: PHHY2012MX083817

PATIENT
  Age: 81 Year
  Sex: Female

DRUGS (7)
  1. DIOVAN [Suspect]
     Indication: HYPERTENSION
     Dosage: 1 DF, DAILY
     Dates: start: 201112
  2. ONBREZ [Suspect]
     Indication: ASTHMA
     Dosage: 300 UG, DAILY
     Dates: start: 201110
  3. SINGULAIR [Concomitant]
     Indication: ASTHMA
     Dosage: 1 DF, DAILY
     Dates: start: 200809
  4. METOCLOPRAMIDE [Concomitant]
     Indication: COLITIS
     Dosage: 3 DF, DAILY
     Dates: start: 201209
  5. OMEPRAZOL [Concomitant]
     Indication: GASTRITIS
     Dosage: 1 DF, UNK
  6. ASPIRIN PROTECT [Concomitant]
     Indication: COAGULOPATHY
     Dosage: 1 DF, DAILY
     Dates: start: 200909
  7. ARTRENE [Concomitant]
     Indication: ARTHRALGIA
     Dosage: 1 DF, DAILY
     Dates: start: 200910

REACTIONS (5)
  - Asthma [Not Recovered/Not Resolved]
  - Chest discomfort [Not Recovered/Not Resolved]
  - Productive cough [Not Recovered/Not Resolved]
  - Dyspnoea [Unknown]
  - Off label use [Unknown]
